FAERS Safety Report 8370424-9 (Version None)
Quarter: 2012Q2

REPORT INFORMATION
  Report Type: 
  Country: None (occurrence: None)
  Receive Date: 20120518
  Receipt Date: 20120309
  Transmission Date: 20120825
  Serious: No
  Sender: FDA-Public Use
  Company Number: US-PFIZER INC-2012118068

PATIENT
  Sex: Female

DRUGS (5)
  1. PRILOSEC [Suspect]
  2. NEXIUM [Suspect]
  3. CODEINE SULFATE [Suspect]
  4. POTASSIUM PENICILLIN G [Suspect]
  5. BIAXIN [Suspect]

REACTIONS (1)
  - DRUG HYPERSENSITIVITY [None]
